FAERS Safety Report 9152061 (Version 1)
Quarter: 2013Q1

REPORT INFORMATION
  Report Type: Spontaneous
  Country: US (occurrence: US)
  Receive Date: 20130308
  Receipt Date: 20130308
  Transmission Date: 20140127
  Serious: Yes (Other)
  Sender: FDA-Public Use
  Company Number: US-ASTRAZENECA-2013SE14735

PATIENT
  Age: 52 Year
  Sex: Female

DRUGS (9)
  1. NEXIUM [Suspect]
     Indication: GASTROOESOPHAGEAL REFLUX DISEASE
     Route: 048
     Dates: start: 2001
  2. SEROQUEL [Suspect]
     Indication: DEPRESSION
     Route: 048
     Dates: start: 2009
  3. SEROQUEL [Suspect]
     Indication: ANXIETY
     Route: 048
     Dates: start: 2009
  4. CELEXA [Concomitant]
     Indication: DEPRESSION
     Dosage: UNKNOWN DOSE DAILY
     Route: 048
  5. LOSARTIN [Concomitant]
     Indication: BLOOD PRESSURE
     Route: 048
  6. SYNTHROID [Concomitant]
     Indication: THYROID DISORDER
     Route: 048
  7. WELLBUTRIN [Concomitant]
     Indication: DEPRESSION
     Route: 048
  8. WELLBUTRIN [Concomitant]
     Indication: DEPRESSION
     Route: 048
  9. AMITRIPTANE [Concomitant]
     Indication: FIBROMYALGIA
     Route: 048

REACTIONS (4)
  - Breast cancer [Not Recovered/Not Resolved]
  - Anxiety [Unknown]
  - Depression [Not Recovered/Not Resolved]
  - Drug ineffective [Unknown]
